FAERS Safety Report 15549326 (Version 2)
Quarter: 2019Q2

REPORT INFORMATION
  Report Type: Spontaneous
  Country: JP (occurrence: JP)
  Receive Date: 20181025
  Receipt Date: 20190524
  Transmission Date: 20190711
  Serious: Yes (Other)
  Sender: FDA-Public Use
  Company Number: JP-SUN PHARMACEUTICAL INDUSTRIES LTD-2018R1-189107

PATIENT
  Age: 20 Year
  Sex: Female
  Weight: 39 kg

DRUGS (2)
  1. METHIMAZOLE. [Suspect]
     Active Substance: METHIMAZOLE
     Indication: BASEDOW^S DISEASE
     Dosage: 30 MILLIGRAM, DAILY
     Route: 065
  2. PROPYLTHIOURACIL. [Suspect]
     Active Substance: PROPYLTHIOURACIL
     Indication: BASEDOW^S DISEASE
     Dosage: 150 MILLIGRAM, DAILY
     Route: 065

REACTIONS (4)
  - Hepatic function abnormal [Not Recovered/Not Resolved]
  - Hyperthyroidism [Recovered/Resolved]
  - Femoral neck fracture [Recovered/Resolved]
  - Osteoporosis [Recovered/Resolved]
